FAERS Safety Report 15680112 (Version 2)
Quarter: 2018Q4

REPORT INFORMATION
  Report Type: Spontaneous
  Country: FI (occurrence: FI)
  Receive Date: 20181203
  Receipt Date: 20181206
  Transmission Date: 20190205
  Serious: Yes (Other)
  Sender: FDA-Public Use
  Company Number: FI-BAUSCH-BL-2018-033516

PATIENT
  Age: 53 Year
  Sex: Male

DRUGS (3)
  1. FLAVAMED [Suspect]
     Active Substance: AMBROXOL
     Indication: SINUSITIS
     Route: 048
  2. FLAVAMED [Suspect]
     Active Substance: AMBROXOL
     Indication: OFF LABEL USE
  3. DOXYCYCLINE HYDROCHLORIDE [Suspect]
     Active Substance: DOXYCYCLINE HYDROCHLORIDE
     Indication: SINUSITIS
     Route: 065

REACTIONS (3)
  - Toxic epidermal necrolysis [Unknown]
  - Skin reaction [Unknown]
  - Off label use [Recovered/Resolved]
